FAERS Safety Report 9663509 (Version 1)
Quarter: 2013Q4

REPORT INFORMATION
  Report Type: Spontaneous
  Country: FR (occurrence: FR)
  Receive Date: 20131101
  Receipt Date: 20131101
  Transmission Date: 20140711
  Serious: Yes (Death)
  Sender: FDA-Public Use
  Company Number: FR-B.I. PHARMACEUTICALS,INC./RIDGEFIELD-2013-FF-02617FF

PATIENT
  Age: 77 Year
  Sex: Female

DRUGS (3)
  1. PRADAXA [Suspect]
     Indication: ATRIAL FIBRILLATION
     Dosage: 220 MG
     Route: 048
     Dates: start: 201309, end: 20131009
  2. CORDARONE [Concomitant]
     Indication: ATRIAL FIBRILLATION
  3. OFLOCET [Concomitant]
     Indication: URINARY TRACT INFECTION
     Dates: end: 20131009

REACTIONS (3)
  - Haemoptysis [Fatal]
  - Haematemesis [Fatal]
  - Haematuria [Fatal]
